FAERS Safety Report 20493213 (Version 1)
Quarter: 2022Q1

REPORT INFORMATION
  Report Type: Spontaneous
  Country: US (occurrence: US)
  Receive Date: 20220220
  Receipt Date: 20220220
  Transmission Date: 20220423
  Serious: Yes (Other)
  Sender: FDA-Public Use
  Company Number: US-SANOFI-00981055

PATIENT
  Sex: Male

DRUGS (1)
  1. JEVTANA [Suspect]
     Active Substance: CABAZITAXEL
     Indication: Neoplasm malignant
     Dosage: UTR
     Dates: start: 2019

REACTIONS (2)
  - Neoplasm malignant [Unknown]
  - Disease progression [Unknown]
